FAERS Safety Report 5966499-4 (Version None)
Quarter: 2008Q4

REPORT INFORMATION
  Report Type: 
  Country: None (occurrence: None)
  Receive Date: 20081119
  Receipt Date: 20080722
  Transmission Date: 20090506
  Serious: No
  Sender: FDA-Public Use
  Company Number: WAES 0807USA04379

PATIENT
  Age: 49 Year
  Sex: Male
  Weight: 117.9352 kg

DRUGS (7)
  1. JANUVIA [Suspect]
     Indication: DIABETES MELLITUS
     Dosage: 100 MG/DAILY/PO
     Route: 048
  2. CLARITIN [Concomitant]
  3. LANTUS [Concomitant]
  4. TIMOPTIC-XE [Concomitant]
  5. VASOTEC [Concomitant]
  6. INSULIN [Concomitant]
  7. METFORMIN HCL [Concomitant]

REACTIONS (2)
  - EXFOLIATIVE RASH [None]
  - PHOTOSENSITIVITY REACTION [None]
